FAERS Safety Report 15717953 (Version 3)
Quarter: 2019Q2

REPORT INFORMATION
  Report Type: Spontaneous
  Country: US (occurrence: US)
  Receive Date: 20181213
  Receipt Date: 20190527
  Transmission Date: 20190711
  Serious: Yes (Hospitalization, Disabling, Other)
  Sender: FDA-Public Use
  Company Number: US-SA-2018SA337417

PATIENT
  Age: 61 Year
  Sex: Female

DRUGS (1)
  1. AUBAGIO [Suspect]
     Active Substance: TERIFLUNOMIDE
     Indication: MULTIPLE SCLEROSIS
     Dosage: 14 MG, QD
     Route: 048

REACTIONS (4)
  - Urinary tract infection fungal [Unknown]
  - Multiple sclerosis relapse [Unknown]
  - Orthosis user [Unknown]
  - Bone density decreased [Not Recovered/Not Resolved]

NARRATIVE: CASE EVENT DATE: 2017
